FAERS Safety Report 5672441-6 (Version None)
Quarter: 2008Q1

REPORT INFORMATION
  Report Type: 
  Country: None (occurrence: None)
  Receive Date: 20080319
  Receipt Date: 20080314
  Transmission Date: 20080703
  Serious: Yes (Other)
  Sender: FDA-Public Use
  Company Number: A0714572A

PATIENT
  Sex: Female

DRUGS (1)
  1. ALLI [Suspect]
     Indication: DRUG USE FOR UNKNOWN INDICATION
     Route: 048
     Dates: start: 20080304

REACTIONS (5)
  - ASTHENIA [None]
  - FLATULENCE [None]
  - PAIN [None]
  - RENAL CELL CARCINOMA [None]
  - THINKING ABNORMAL [None]
